FAERS Safety Report 12367334 (Version 1)
Quarter: 2016Q2

REPORT INFORMATION
  Report Type: Spontaneous
  Country: US (occurrence: US)
  Receive Date: 20160513
  Receipt Date: 20160513
  Transmission Date: 20160815
  Serious: No
  Sender: FDA-Public Use
  Company Number: US-PERRIGO-16US000429

PATIENT
  Age: 83 Year
  Sex: Male

DRUGS (1)
  1. CLINDAMYCIN PHOSPHATE. [Suspect]
     Active Substance: CLINDAMYCIN PHOSPHATE
     Indication: ACNE
     Dosage: SMALL AMOUNT, TWICE DAILY AS NEEDED
     Route: 061
     Dates: start: 2012

REACTIONS (1)
  - Therapeutic response unexpected [Recovered/Resolved]
